FAERS Safety Report 4868752-4 (Version None)
Quarter: 2005Q4

REPORT INFORMATION
  Report Type: 
  Country: None (occurrence: None)
  Receive Date: 20051223
  Receipt Date: 20051214
  Transmission Date: 20060501
  Serious: Yes (Hospitalization)
  Sender: FDA-Public Use
  Company Number: 2005JP002299

PATIENT
  Age: 60 Year
  Sex: Male
  Weight: 68.7 kg

DRUGS (6)
  1. FUNGUARD (MICAFUNGIN) INJECTION [Suspect]
     Indication: BRONCHOPULMONARY ASPERGILLOSIS
     Dosage: SEE IMAGE
     Dates: start: 20051003, end: 20051117
  2. FUNGUARD (MICAFUNGIN) INJECTION [Suspect]
     Indication: BRONCHOPULMONARY ASPERGILLOSIS
     Dosage: SEE IMAGE
     Dates: start: 20051209
  3. ITRACONAZOLE [Suspect]
     Indication: BRONCHOPULMONARY ASPERGILLOSIS
     Dosage: 200 MG, UID/QD, ORAL
     Route: 048
     Dates: start: 20051003, end: 20051117
  4. UNASYN [Suspect]
     Indication: PNEUMONIA
     Dosage: 3 G, BID, IV NOS
     Route: 042
     Dates: start: 20051107, end: 20051114
  5. INSULIN [Concomitant]
  6. BASEN (VOGLIBOSE) TABLET [Concomitant]

REACTIONS (4)
  - CHEST X-RAY ABNORMAL [None]
  - COUGH [None]
  - CRYPTOGENIC ORGANIZING PNEUMONIA [None]
  - PYREXIA [None]
